FAERS Safety Report 23581936 (Version 1)
Quarter: 2024Q1

REPORT INFORMATION
  Report Type: Spontaneous
  Country: CN (occurrence: CN)
  Receive Date: 20240229
  Receipt Date: 20240229
  Transmission Date: 20240410
  Serious: Yes (Hospitalization, Other)
  Sender: FDA-Public Use
  Company Number: CN-009507513-2402CHN008779

PATIENT
  Age: 73 Year
  Sex: Female
  Weight: 47 kg

DRUGS (2)
  1. KEYTRUDA [Suspect]
     Active Substance: PEMBROLIZUMAB
     Indication: Malignant melanoma
     Dosage: 200 MILLIGRAM, ONCE
     Route: 041
     Dates: start: 20231230, end: 20231230
  2. SODIUM CHLORIDE [Concomitant]
     Active Substance: SODIUM CHLORIDE
     Indication: Malignant melanoma
     Dosage: DOSE: 250 MILLILITER
     Route: 041
     Dates: start: 20231230

REACTIONS (5)
  - Liver injury [Unknown]
  - Body temperature increased [Recovered/Resolved]
  - Blood pressure increased [Unknown]
  - Heart rate increased [Unknown]
  - Respiratory rate increased [Unknown]

NARRATIVE: CASE EVENT DATE: 20240124
